FAERS Safety Report 8421565-9 (Version None)
Quarter: 2012Q2

REPORT INFORMATION
  Report Type: 
  Country: None (occurrence: None)
  Receive Date: 20120605
  Receipt Date: 20120605
  Transmission Date: 20120825
  Serious: No
  Sender: FDA-Public Use
  Company Number: None

PATIENT
  Age: 75 Year
  Sex: Female
  Weight: 77.1115 kg

DRUGS (7)
  1. HYDROCHLOROTHIAZIDE [Concomitant]
  2. DIURETIC GABAPENTIN [Concomitant]
  3. HYPERTENSION [Concomitant]
  4. NEUROPATHY LEVOTHYROXIN [Concomitant]
  5. SYNTHROID [Concomitant]
  6. CITALOPRAM HYDROBROMIDE [Suspect]
     Indication: DEPRESSION
     Dosage: 20 MG X1 DAILY PO
     Route: 048
     Dates: start: 20120428, end: 20120430
  7. CLONIDINE [Concomitant]

REACTIONS (4)
  - FATIGUE [None]
  - PHYSICAL EXAMINATION ABNORMAL [None]
  - MUSCLE TWITCHING [None]
  - CHILLS [None]
